FAERS Safety Report 9073650 (Version 1)
Quarter: 2013Q1

REPORT INFORMATION
  Report Type: Spontaneous
  Country: US (occurrence: US)
  Receive Date: 20130129
  Receipt Date: 20130129
  Transmission Date: 20140127
  Serious: No
  Sender: FDA-Public Use
  Company Number: US-ABBOTT-12P-163-0915735-00

PATIENT
  Age: 49 None
  Sex: Male
  Weight: 103.06 kg

DRUGS (5)
  1. HUMIRA 40 MG/ 0.8 ML PRE-FILLED SYRINGE [Suspect]
     Indication: CROHN^S DISEASE
     Route: 058
     Dates: start: 20120112, end: 20120312
  2. IMURAN [Suspect]
     Indication: PRODUCT USED FOR UNKNOWN INDICATION
     Dates: start: 20101108, end: 20111117
  3. IMURAN [Suspect]
     Dates: start: 20111118, end: 20120223
  4. IMURAN [Concomitant]
     Indication: CROHN^S DISEASE
     Dates: end: 20111118
  5. IMURAN [Concomitant]
     Dates: start: 20111118, end: 20120223

REACTIONS (6)
  - Aspartate aminotransferase increased [Unknown]
  - Alanine aminotransferase increased [Unknown]
  - Platelet count decreased [Unknown]
  - Aspartate aminotransferase increased [Unknown]
  - Alanine aminotransferase increased [Unknown]
  - Platelet count decreased [Unknown]
